FAERS Safety Report 14934748 (Version 1)
Quarter: 2018Q2

REPORT INFORMATION
  Report Type: Spontaneous
  Country: US (occurrence: US)
  Receive Date: 20180505
  Receipt Date: 20180505
  Transmission Date: 20180711
  Serious: Yes (Hospitalization)
  Sender: FDA-Public Use
  Company Number: None

PATIENT
  Age: 71 Year
  Sex: Female
  Weight: 92.7 kg

DRUGS (6)
  1. HYSINGLA ER [Suspect]
     Active Substance: HYDROCODONE BITARTRATE
     Indication: ARTHRALGIA
     Route: 048
     Dates: start: 20180326, end: 20180405
  2. HYSINGLA ER [Suspect]
     Active Substance: HYDROCODONE BITARTRATE
     Indication: ARTHRITIS
     Route: 048
     Dates: start: 20180326, end: 20180405
  3. BACLOFEN 10 MG [Concomitant]
     Active Substance: BACLOFEN
  4. MELOXICAM 15 MG [Concomitant]
     Active Substance: MELOXICAM
  5. HYDROCODONE-ACETAMINOPHEN 10-325 MG [Concomitant]
  6. LORAZEPAM 2 MG [Concomitant]

REACTIONS (3)
  - Respiratory failure [None]
  - Rhabdomyolysis [None]
  - Pneumonia aspiration [None]

NARRATIVE: CASE EVENT DATE: 20180405
